FAERS Safety Report 4734527-X (Version None)
Quarter: 2005Q3

REPORT INFORMATION
  Report Type: 
  Country: None (occurrence: None)
  Receive Date: 20050803
  Receipt Date: 20050803
  Transmission Date: 20060218
  Serious: Yes (Other)
  Sender: FDA-Public Use
  Company Number: None

PATIENT
  Age: 61 Year
  Sex: Male
  Weight: 119.7 kg

DRUGS (1)
  1. FELODIPINE [Suspect]

REACTIONS (1)
  - FATIGUE [None]
